FAERS Safety Report 5601453-3 (Version None)
Quarter: 2008Q1

REPORT INFORMATION
  Report Type: 
  Country: None (occurrence: None)
  Receive Date: 20080124
  Receipt Date: 20080122
  Transmission Date: 20080703
  Serious: Yes (Death)
  Sender: FDA-Public Use
  Company Number: US-ASTRAZENECA-2008UW01538

PATIENT
  Sex: Female
  Weight: 53.3 kg

DRUGS (4)
  1. FASLODEX [Suspect]
     Indication: BREAST CANCER METASTATIC
     Dosage: DAY 1
     Route: 030
     Dates: start: 20071119
  2. FASLODEX [Suspect]
     Dosage: DAY 14, 28
     Route: 030
     Dates: end: 20071219
  3. ARIMIDEX [Suspect]
     Indication: BREAST CANCER METASTATIC
     Route: 048
     Dates: start: 20071119
  4. INSULIN [Concomitant]

REACTIONS (1)
  - SUDDEN DEATH [None]
